FAERS Safety Report 6097620-8 (Version None)
Quarter: 2009Q1

REPORT INFORMATION
  Report Type: 
  Country: None (occurrence: None)
  Receive Date: 20090227
  Receipt Date: 20090223
  Transmission Date: 20090719
  Serious: Yes (Other)
  Sender: FDA-Public Use
  Company Number: FR-AVENTIS-200910734FR

PATIENT
  Age: 71 Year
  Sex: Male

DRUGS (2)
  1. DAONIL [Suspect]
     Route: 048
  2. METFORMIN HCL [Concomitant]
     Route: 048

REACTIONS (4)
  - ANTINUCLEAR ANTIBODY POSITIVE [None]
  - MYALGIA [None]
  - POLYMYALGIA RHEUMATICA [None]
  - RHEUMATOID ARTHRITIS [None]
